FAERS Safety Report 10333581 (Version 1)
Quarter: 2014Q3

REPORT INFORMATION
  Report Type: Report from Study
  Country: ES (occurrence: ES)
  Receive Date: 20140723
  Receipt Date: 20140723
  Transmission Date: 20150326
  Serious: Yes (Other)
  Sender: FDA-Public Use
  Company Number: ES-ROCHE-1437287

PATIENT

DRUGS (4)
  1. TRASTUZUMAB [Suspect]
     Active Substance: TRASTUZUMAB
     Dosage: WEEKLY IN A 30-MIN IV INFUSION FOR?UP TO 18 WEEKS
     Route: 042
  2. PACLITAXEL. [Suspect]
     Active Substance: PACLITAXEL
     Indication: HER-2 POSITIVE BREAST CANCER
     Dosage: IN A 1-H?IV INFUSION ON DAY 1 EVERY WEEK FOR 18 WEEKS,
     Route: 042
  3. LIPOSOMAL ENCAPSULATED DOXORUBICIN [Suspect]
     Active Substance: DOXORUBICIN
     Indication: HER-2 POSITIVE BREAST CANCER
     Dosage: IN A 1-H?IV INFUSION  ON DAY 1 EVERY 3 WEEKS FOR SIX CYCLES
     Route: 042
  4. TRASTUZUMAB [Suspect]
     Active Substance: TRASTUZUMAB
     Indication: HER-2 POSITIVE BREAST CANCER
     Dosage: INITIAL DOSE IN A 90-MIN IV INFUSION
     Route: 042

REACTIONS (13)
  - Neutropenia [Unknown]
  - Nausea [Unknown]
  - Infection [Unknown]
  - Skin toxicity [Unknown]
  - Neuropathy peripheral [Unknown]
  - Sepsis [Unknown]
  - Anaemia [Unknown]
  - Mucosal inflammation [Unknown]
  - Ejection fraction decreased [Unknown]
  - Onycholysis [Unknown]
  - Asthenia [Unknown]
  - Diarrhoea [Unknown]
  - Febrile neutropenia [Unknown]
